FAERS Safety Report 13540932 (Version 1)
Quarter: 2017Q2

REPORT INFORMATION
  Report Type: Spontaneous
  Country: TR (occurrence: TR)
  Receive Date: 20170512
  Receipt Date: 20170512
  Transmission Date: 20170830
  Serious: Yes (Hospitalization)
  Sender: FDA-Public Use
  Company Number: TR-SA-2017SA083691

PATIENT
  Age: 37 Year
  Sex: Female

DRUGS (1)
  1. ENOXAPARIN SODIUM. [Suspect]
     Active Substance: ENOXAPARIN SODIUM
     Indication: THROMBOSIS
     Dosage: HIGH-DOSE ENOXAPARINE TREATMENT
     Route: 065

REACTIONS (3)
  - Drug ineffective [Unknown]
  - Pain [Unknown]
  - Splenic necrosis [Unknown]
